FAERS Safety Report 10926518 (Version 4)
Quarter: 2015Q2

REPORT INFORMATION
  Report Type: Report from Study
  Country: US (occurrence: US)
  Receive Date: 20150318
  Receipt Date: 20150506
  Transmission Date: 20150821
  Serious: Yes (Hospitalization, Other)
  Sender: FDA-Public Use
  Company Number: US-ABBVIE-15K-163-1359466-00

PATIENT
  Age: 19 Year
  Sex: Male
  Weight: 73.55 kg

DRUGS (8)
  1. HUMIRA [Suspect]
     Active Substance: ADALIMUMAB
     Indication: PSORIASIS
     Route: 065
     Dates: start: 20130104, end: 20130223
  2. TENAX [Concomitant]
     Indication: PRODUCT USED FOR UNKNOWN INDICATION
  3. HUMIRA [Suspect]
     Active Substance: ADALIMUMAB
     Route: 065
     Dates: start: 20130322
  4. HUMIRA [Suspect]
     Active Substance: ADALIMUMAB
     Indication: PSORIASIS
     Route: 065
  5. DEPAKOTE [Concomitant]
     Active Substance: DIVALPROEX SODIUM
     Indication: PRODUCT USED FOR UNKNOWN INDICATION
  6. FLOVENT [Concomitant]
     Active Substance: FLUTICASONE PROPIONATE
     Indication: ASTHMA
  7. QVAR [Concomitant]
     Active Substance: BECLOMETHASONE DIPROPIONATE
     Indication: ASTHMA
  8. SEROQUEL [Concomitant]
     Active Substance: QUETIAPINE FUMARATE
     Indication: BIPOLAR DISORDER

REACTIONS (17)
  - Headache [Not Recovered/Not Resolved]
  - Visual impairment [Unknown]
  - Photophobia [Unknown]
  - Dehydration [Unknown]
  - Injection site swelling [Unknown]
  - Paraesthesia [Unknown]
  - Vomiting [Unknown]
  - Seizure [Not Recovered/Not Resolved]
  - Fall [Recovered/Resolved]
  - Migraine [Unknown]
  - Hypotension [Unknown]
  - Blood glucose decreased [Unknown]
  - Hyperacusis [Unknown]
  - Injection site erythema [Unknown]
  - Injection site papule [Unknown]
  - Loss of consciousness [Unknown]
  - Injection site pain [Unknown]

NARRATIVE: CASE EVENT DATE: 20130104
